FAERS Safety Report 6095739-9 (Version None)
Quarter: 2009Q1

REPORT INFORMATION
  Report Type: 
  Country: None (occurrence: None)
  Receive Date: 20090227
  Receipt Date: 20080529
  Transmission Date: 20090719
  Serious: No
  Sender: FDA-Public Use
  Company Number: A0731506A

PATIENT
  Age: 54 Year
  Sex: Female

DRUGS (5)
  1. LAMICTAL [Suspect]
     Route: 048
  2. THYROID TAB [Concomitant]
     Dosage: 210MG PER DAY
     Route: 048
  3. GEODON [Concomitant]
     Dosage: 20MG VARIABLE DOSE
     Route: 048
  4. AMBIEN [Concomitant]
     Indication: INSOMNIA
     Route: 048
  5. DEPAKOTE [Concomitant]
     Dates: end: 20071201

REACTIONS (15)
  - ANXIETY [None]
  - BLISTER [None]
  - CHILLS [None]
  - COUGH [None]
  - EYE DISCHARGE [None]
  - EYE PRURITUS [None]
  - GENITAL PAIN [None]
  - LACRIMATION INCREASED [None]
  - NASAL DISCOMFORT [None]
  - PARAESTHESIA [None]
  - PROCTALGIA [None]
  - PYREXIA [None]
  - RASH PAPULAR [None]
  - RHINORRHOEA [None]
  - STOMATITIS [None]
